FAERS Safety Report 4660300-7 (Version None)
Quarter: 2005Q2

REPORT INFORMATION
  Report Type: 
  Country: None (occurrence: None)
  Receive Date: 20050511
  Receipt Date: 20050511
  Transmission Date: 20051028
  Serious: Yes (Hospitalization)
  Sender: FDA-Public Use
  Company Number: None

PATIENT
  Age: 90 Year
  Sex: Male
  Weight: 61 kg

DRUGS (11)
  1. WARFARIN SODIUM [Suspect]
     Indication: COAGULATION TIME
     Dosage: 5 - 5 - 2.5     (2.5 HELD)
     Dates: start: 20050320, end: 20050322
  2. WARFARIN SODIUM [Suspect]
     Indication: HIP FRACTURE
     Dosage: 5 - 5 - 2.5     (2.5 HELD)
     Dates: start: 20050320, end: 20050322
  3. HEPARIN [Suspect]
     Indication: THROMBOSIS PROPHYLAXIS
     Dosage: 5000 UNITS SQ BID
     Dates: start: 20050319, end: 20050323
  4. MORPHINE [Concomitant]
  5. DYAZIDE [Concomitant]
  6. POTASSIUM CHLORIDE [Concomitant]
  7. THEOPHYLLINE [Concomitant]
  8. ASPIRIN [Concomitant]
  9. MULTI-VIT [Concomitant]
  10. ALBUTEROL [Concomitant]
  11. STOOL SOFTENERS [Concomitant]

REACTIONS (7)
  - GASTRITIS EROSIVE [None]
  - GASTRITIS HAEMORRHAGIC [None]
  - HAEMATOCRIT DECREASED [None]
  - HAEMOGLOBIN DECREASED [None]
  - HAEMOPTYSIS [None]
  - INTERNATIONAL NORMALISED RATIO INCREASED [None]
  - POST PROCEDURAL HAEMORRHAGE [None]
